FAERS Safety Report 8263538-5 (Version None)
Quarter: 2012Q2

REPORT INFORMATION
  Report Type: 
  Country: None (occurrence: None)
  Receive Date: 20120405
  Receipt Date: 20120328
  Transmission Date: 20120825
  Serious: Yes (Hospitalization)
  Sender: FDA-Public Use
  Company Number: TR-PERRIGO-12TR002696

PATIENT
  Age: 10 Year
  Sex: Male

DRUGS (4)
  1. CEFUROXIME AXETIL [Suspect]
     Indication: COUGH
  2. IBUPROFEN [Suspect]
     Indication: PYREXIA
     Dosage: UNK
     Route: 065
  3. IBUPROFEN [Suspect]
     Indication: COUGH
  4. CEFUROXIME AXETIL [Suspect]
     Indication: PYREXIA

REACTIONS (1)
  - TOXIC EPIDERMAL NECROLYSIS [None]
